FAERS Safety Report 15352462 (Version 3)
Quarter: 2018Q3

REPORT INFORMATION
  Report Type: Spontaneous
  Country: US (occurrence: US)
  Receive Date: 20180905
  Receipt Date: 20180912
  Transmission Date: 20181010
  Serious: No
  Sender: FDA-Public Use
  Company Number: US-PFIZER INC-2018357325

PATIENT
  Age: 51 Year
  Sex: Female
  Weight: 99.79 kg

DRUGS (2)
  1. IBUPROFEN. [Concomitant]
     Active Substance: IBUPROFEN
     Indication: PAIN
     Dosage: 800 MG, 3X/DAY
     Route: 048
  2. LYRICA [Suspect]
     Active Substance: PREGABALIN
     Indication: FIBROMYALGIA
     Dosage: 300 MG, 2X/DAY
     Route: 048

REACTIONS (14)
  - Pyrexia [Unknown]
  - Heart rate increased [Unknown]
  - Muscle spasms [Unknown]
  - Bone disorder [Unknown]
  - Headache [Unknown]
  - Pain [Unknown]
  - Asthenia [Unknown]
  - Withdrawal syndrome [Unknown]
  - Nausea [Unknown]
  - Feeling cold [Unknown]
  - Drug ineffective [Unknown]
  - Eating disorder [Unknown]
  - Pain in extremity [Unknown]
  - Chills [Unknown]
